FAERS Safety Report 4615833-6 (Version None)
Quarter: 2005Q2

REPORT INFORMATION
  Report Type: 
  Country: None (occurrence: None)
  Receive Date: 20050308
  Receipt Date: 20040503
  Transmission Date: 20051028
  Serious: Yes (Hospitalization)
  Sender: FDA-Public Use
  Company Number: 200417525BWH

PATIENT
  Age: 77 Year
  Sex: Female

DRUGS (14)
  1. CIPRO IV [Suspect]
     Indication: UROSEPSIS
     Dosage: 800 MG, TOTAL DAILY, INTRAVENOUS
     Route: 042
     Dates: start: 20040107, end: 20040112
  2. ATENOLOL [Concomitant]
  3. CARDIZEM CD [Concomitant]
  4. PEPCID [Concomitant]
  5. HYDROCHLOROTHIAZIDE [Concomitant]
  6. LISINOPRIL [Concomitant]
  7. ACTOS [Concomitant]
  8. AVANDIA [Concomitant]
  9. ASPIRIN [Concomitant]
  10. LACTULOSE [Concomitant]
  11. NITROGLYCERIN [Concomitant]
  12. MEGACE [Concomitant]
  13. GLUCOPHAGE [Concomitant]
  14. .. [Suspect]

REACTIONS (3)
  - HYPERSENSITIVITY [None]
  - PRURITUS [None]
  - RASH [None]
